FAERS Safety Report 8121008 (Version 5)
Quarter: 2025Q1

REPORT INFORMATION
  Report Type: Report from Study
  Country: DE (occurrence: DE)
  Receive Date: 20110906
  Receipt Date: 20250222
  Transmission Date: 20250409
  Serious: Yes (Hospitalization)
  Sender: ROCHE
  Company Number: DE-ROCHE-732256

PATIENT
  Age: 39 Year
  Sex: Female
  Weight: 68.0 kg

DRUGS (17)
  1. BEVACIZUMAB [Suspect]
     Active Substance: BEVACIZUMAB
     Indication: Breast cancer metastatic
     Route: 042
     Dates: start: 20100505
  2. BEVACIZUMAB [Suspect]
     Active Substance: BEVACIZUMAB
     Route: 042
     Dates: start: 20101111
  3. BEVACIZUMAB [Suspect]
     Active Substance: BEVACIZUMAB
     Route: 042
     Dates: start: 20100818
  4. BISOPROLOL [Concomitant]
     Active Substance: BISOPROLOL
     Indication: Tachycardia
     Route: 065
     Dates: start: 20101222
  5. DOCETAXEL [Concomitant]
     Active Substance: DOCETAXEL
     Indication: Breast cancer
     Route: 065
     Dates: start: 20100505
  6. DOCETAXEL [Concomitant]
     Active Substance: DOCETAXEL
     Dates: start: 20100526
  7. DOCETAXEL [Concomitant]
     Active Substance: DOCETAXEL
     Dates: start: 20100616
  8. DOCETAXEL [Concomitant]
     Active Substance: DOCETAXEL
     Dates: start: 20100707
  9. DOCETAXEL [Concomitant]
     Active Substance: DOCETAXEL
     Dates: start: 20100728
  10. DOCETAXEL [Concomitant]
     Active Substance: DOCETAXEL
     Dates: start: 20100818
  11. LENOGRASTIM [Concomitant]
     Active Substance: LENOGRASTIM
     Indication: Leukopenia
     Route: 065
     Dates: start: 20100602, end: 20100603
  12. LENOGRASTIM [Concomitant]
     Active Substance: LENOGRASTIM
     Dates: start: 20100623, end: 20100623
  13. LENOGRASTIM [Concomitant]
     Active Substance: LENOGRASTIM
     Dates: start: 20100713, end: 20100714
  14. CIPROFLOXACIN [Concomitant]
     Active Substance: CIPROFLOXACIN
     Indication: Infection
     Dosage: 500? FREQUENCY TEXT:DAILY
     Route: 065
     Dates: start: 20100514, end: 20100524
  15. CIPROFLOXACIN [Concomitant]
     Active Substance: CIPROFLOXACIN
     Dosage: FREQUENCY TEXT:DAILY
     Dates: start: 20100601, end: 20100611
  16. TAXOTERE [Concomitant]
     Active Substance: DOCETAXEL
     Indication: Breast cancer metastatic
     Route: 042
     Dates: start: 20100505
  17. IBUPROFEN [Concomitant]
     Active Substance: IBUPROFEN
     Indication: Bone pain
     Dates: start: 20101106

REACTIONS (5)
  - Pleural effusion [Recovered/Resolved]
  - Influenza like illness [Recovered/Resolved]
  - Tachycardia [Recovered/Resolved]
  - Bone pain [Not Recovered/Not Resolved]
  - Dyspnoea [Recovered/Resolved]

NARRATIVE: CASE EVENT DATE: 20100927
